FAERS Safety Report 10037725 (Version 1)
Quarter: 2014Q1

REPORT INFORMATION
  Report Type: Spontaneous
  Country: US (occurrence: US)
  Receive Date: 20140326
  Receipt Date: 20140326
  Transmission Date: 20141002
  Serious: No
  Sender: FDA-Public Use
  Company Number: US-PFIZER INC-2014083591

PATIENT
  Age: 68 Year
  Sex: Female
  Weight: 47.62 kg

DRUGS (1)
  1. ADVIL MIGRAINE [Suspect]
     Indication: MIGRAINE
     Dosage: UNK
     Dates: start: 20140320, end: 20140320

REACTIONS (1)
  - Drug ineffective [Unknown]
